FAERS Safety Report 21937708 (Version 2)
Quarter: 2023Q1

REPORT INFORMATION
  Report Type: Spontaneous
  Country: US (occurrence: US)
  Receive Date: 20230201
  Receipt Date: 20230222
  Transmission Date: 20230418
  Serious: No
  Sender: FDA-Public Use
  Company Number: US-AMGEN-USASP2023013493

PATIENT
  Age: 63 Year
  Sex: Male

DRUGS (1)
  1. REPATHA [Suspect]
     Active Substance: EVOLOCUMAB
     Indication: Blood cholesterol increased
     Dosage: 140 MILLIGRAM, Q2WK
     Route: 065
     Dates: start: 201610

REACTIONS (9)
  - Blood pressure increased [Unknown]
  - Troponin increased [Unknown]
  - C-reactive protein increased [Unknown]
  - Diarrhoea [Unknown]
  - Flushing [Unknown]
  - Gastrointestinal disorder [Unknown]
  - Dermatitis [Unknown]
  - Sinusitis [Unknown]
  - Red blood cell sedimentation rate increased [Unknown]

NARRATIVE: CASE EVENT DATE: 20220101
